FAERS Safety Report 7115436-8 (Version None)
Quarter: 2010Q4

REPORT INFORMATION
  Report Type: 
  Country: None (occurrence: None)
  Receive Date: 20101122
  Receipt Date: 20101116
  Transmission Date: 20110411
  Serious: Yes (Death)
  Sender: FDA-Public Use
  Company Number: AU-ASTRAZENECA-2010SE54740

PATIENT

DRUGS (2)
  1. NEXIUM [Suspect]
     Route: 048
  2. RULIDE [Interacting]
     Route: 065

REACTIONS (2)
  - DRUG INTERACTION [None]
  - MUSCLE INJURY [None]
